FAERS Safety Report 7309307-1 (Version None)
Quarter: 2011Q1

REPORT INFORMATION
  Report Type: 
  Country: None (occurrence: None)
  Receive Date: 20110223
  Receipt Date: 20110215
  Transmission Date: 20110831
  Serious: Yes (Other)
  Sender: FDA-Public Use
  Company Number: DE-TEVA-266572GER

PATIENT
  Age: 62 Year
  Sex: Male

DRUGS (2)
  1. CICLOSPORIN [Suspect]
  2. PREDNISOLONE ACETATE [Suspect]
     Dosage: 10-40 MG/DAY

REACTIONS (6)
  - ULCERATIVE KERATITIS [None]
  - BLEPHARITIS [None]
  - KERATITIS [None]
  - ORAL CANDIDIASIS [None]
  - EYE PENETRATION [None]
  - GRAFT DYSFUNCTION [None]
